FAERS Safety Report 6040498-9 (Version None)
Quarter: 2009Q1

REPORT INFORMATION
  Report Type: 
  Country: None (occurrence: None)
  Receive Date: 20090116
  Receipt Date: 20080325
  Transmission Date: 20090719
  Serious: No
  Sender: FDA-Public Use
  Company Number: US-BRISTOL-MYERS SQUIBB COMPANY-14125249

PATIENT
  Age: 41 Year
  Sex: Male
  Weight: 77 kg

DRUGS (4)
  1. ABILIFY [Suspect]
  2. TEGRETOL [Concomitant]
  3. EFFEXOR XR [Concomitant]
  4. KLONOPIN [Concomitant]

REACTIONS (2)
  - DEPRESSION [None]
  - HEADACHE [None]
